FAERS Safety Report 9055860 (Version 1)
Quarter: 2013Q1

REPORT INFORMATION
  Report Type: Spontaneous
  Country: US (occurrence: US)
  Receive Date: 20130206
  Receipt Date: 20130206
  Transmission Date: 20140127
  Serious: No
  Sender: FDA-Public Use
  Company Number: US-ALLERGAN-1203242US

PATIENT
  Sex: Female

DRUGS (1)
  1. RESTASIS [Suspect]
     Indication: CORNEAL EROSION
     Dosage: UNK
     Route: 047

REACTIONS (1)
  - Eyelid irritation [Unknown]
